FAERS Safety Report 6979101-X (Version None)
Quarter: 2010Q3

REPORT INFORMATION
  Report Type: 
  Country: None (occurrence: None)
  Receive Date: 20100913
  Receipt Date: 20100831
  Transmission Date: 20110219
  Serious: Yes (Other)
  Sender: FDA-Public Use
  Company Number: PHHY2010US58048

PATIENT
  Age: 55 Year
  Sex: Female
  Weight: 120.2 kg

DRUGS (9)
  1. DIOVAN [Suspect]
     Indication: HYPERTENSION
     Dosage: UNK
     Dates: start: 20100317
  2. OMNARIS [Suspect]
     Indication: COUGH
     Dosage: 200 MG, QD
     Route: 048
     Dates: start: 20100313, end: 20100101
  3. OMNARIS [Suspect]
     Dosage: 200 MG, PRN
     Dates: end: 20100513
  4. SINGULAIR [Suspect]
  5. LISINOPRIL [Concomitant]
     Dosage: UNK
     Dates: start: 20090101, end: 20100316
  6. XOPENEX [Concomitant]
  7. AEROSOL SPITZNER [Concomitant]
  8. CELEXA [Concomitant]
  9. VITAMINS [Concomitant]

REACTIONS (2)
  - DEAFNESS UNILATERAL [None]
  - TINNITUS [None]
